FAERS Safety Report 5939512-8 (Version None)
Quarter: 2008Q4

REPORT INFORMATION
  Report Type: 
  Country: None (occurrence: None)
  Receive Date: 20081030
  Receipt Date: 20081021
  Transmission Date: 20090506
  Serious: Yes (Hospitalization)
  Sender: FDA-Public Use
  Company Number: 2008SP021437

PATIENT
  Age: 56 Year
  Sex: Female

DRUGS (2)
  1. RIBARIRIN (S-P) [Suspect]
     Indication: HEPATITIS C
     Dosage: ;PO
     Route: 048
     Dates: start: 20080301
  2. PEGASYS [Suspect]
     Indication: HEPATITIS C
     Dates: start: 20080301

REACTIONS (5)
  - ABNORMAL BEHAVIOUR [None]
  - ARTHRITIS [None]
  - INFECTION [None]
  - MENTAL DISORDER [None]
  - NEUTROPHIL COUNT DECREASED [None]
